FAERS Safety Report 8575934-7 (Version None)
Quarter: 2012Q3

REPORT INFORMATION
  Report Type: 
  Country: None (occurrence: None)
  Receive Date: 20120807
  Receipt Date: 20110721
  Transmission Date: 20120928
  Serious: No
  Sender: FDA-Public Use
  Company Number: US-PFIZER INC-K201100859

PATIENT
  Sex: Female

DRUGS (2)
  1. SYNTHROID [Concomitant]
     Dosage: UNK
  2. CYTOMEL [Suspect]
     Indication: HYPERTHYROIDISM
     Dosage: 5 MG, 1X/DAY
     Route: 048
     Dates: start: 20110711, end: 20110716

REACTIONS (3)
  - NAUSEA [None]
  - HEADACHE [None]
  - ENERGY INCREASED [None]
